FAERS Safety Report 6107548-2 (Version None)
Quarter: 2009Q1

REPORT INFORMATION
  Report Type: 
  Country: None (occurrence: None)
  Receive Date: 20090309
  Receipt Date: 20090226
  Transmission Date: 20090719
  Serious: Yes (Hospitalization, Other)
  Sender: FDA-Public Use
  Company Number: PHHY2009DE07197

PATIENT
  Sex: Male

DRUGS (3)
  1. EXELON [Suspect]
     Indication: DEMENTIA
     Dosage: UNK
     Route: 062
     Dates: end: 20090225
  2. EUNERPAN [Concomitant]
     Indication: SEDATION
     Dosage: UNK
     Route: 048
     Dates: start: 20090225, end: 20090225
  3. EUNERPAN [Concomitant]
     Indication: ANXIETY

REACTIONS (6)
  - BRADYCARDIA [None]
  - CIRCULATORY COLLAPSE [None]
  - HYPOTENSION [None]
  - ORTHOSTATIC HYPOTENSION [None]
  - SKIN NEOPLASM EXCISION [None]
  - SOMNOLENCE [None]
